FAERS Safety Report 26037233 (Version 2)
Quarter: 2025Q4

REPORT INFORMATION
  Report Type: Spontaneous
  Country: RU (occurrence: RU)
  Receive Date: 20251112
  Receipt Date: 20251119
  Transmission Date: 20260118
  Serious: Yes (Other)
  Sender: VERITY PHARMACEUTICALS INC.
  Company Number: RU-VER-202500013

PATIENT
  Age: 73 Year
  Sex: Male

DRUGS (1)
  1. TRIPTORELIN PAMOATE [Suspect]
     Active Substance: TRIPTORELIN PAMOATE
     Indication: Product used for unknown indication
     Route: 030
     Dates: start: 2018

REACTIONS (19)
  - Metastases to peritoneum [Unknown]
  - Gastric ulcer [Unknown]
  - Peritoneal lesion [Unknown]
  - Peritoneal lesion [Unknown]
  - Peritoneal lesion [Unknown]
  - Metastases to lung [Unknown]
  - Prostatic specific antigen increased [Unknown]
  - Prostatic specific antigen increased [Unknown]
  - Peritoneal lesion [Unknown]
  - Vertebral lesion [Unknown]
  - Ascites [Unknown]
  - Ascites [Unknown]
  - Vertebral lesion [Unknown]
  - Blood pressure increased [Unknown]
  - Peritoneal lesion [Unknown]
  - Metastases to lung [Unknown]
  - Prostatic specific antigen increased [Unknown]
  - Peritoneal lesion [Unknown]
  - Toxicity to various agents [Unknown]

NARRATIVE: CASE EVENT DATE: 20220301
